FAERS Safety Report 14942206 (Version 1)
Quarter: 2018Q2

REPORT INFORMATION
  Report Type: Spontaneous
  Country: FR (occurrence: FR)
  Receive Date: 20180528
  Receipt Date: 20180528
  Transmission Date: 20180711
  Serious: Yes (Other)
  Sender: FDA-Public Use
  Company Number: FR-MERCK KGAA-2048509

PATIENT
  Age: 70 Year
  Sex: Female

DRUGS (3)
  1. LEVOTHYROX [Suspect]
     Active Substance: LEVOTHYROXINE
  2. NOVOTHYROX [Suspect]
     Active Substance: LEVOTHYROXINE SODIUM
     Indication: PRODUCT USED FOR UNKNOWN INDICATION
  3. LEVOTHYROX [Suspect]
     Active Substance: LEVOTHYROXINE
     Dates: start: 20170228

REACTIONS (15)
  - Dry skin [None]
  - Feeling abnormal [None]
  - Personal relationship issue [None]
  - Chest pain [None]
  - Depression [None]
  - Angina pectoris [None]
  - Decreased activity [None]
  - Social avoidant behaviour [None]
  - Weight increased [None]
  - Libido decreased [None]
  - Asthenia [None]
  - Myalgia [None]
  - Dyspnoea [None]
  - Feeling of despair [None]
  - Fatigue [None]

NARRATIVE: CASE EVENT DATE: 201706
